FAERS Safety Report 5612237-4 (Version None)
Quarter: 2008Q1

REPORT INFORMATION
  Report Type: 
  Country: None (occurrence: None)
  Receive Date: 20080111
  Receipt Date: 20070108
  Transmission Date: 20080703
  Serious: Yes (Other)
  Sender: FDA-Public Use
  Company Number: HQWYE696805APR05

PATIENT
  Age: 65 Year
  Sex: Female

DRUGS (4)
  1. PREMPRO [Suspect]
     Indication: MENOPAUSE
     Dosage: 0.625MG/2.5MG, ORAL
     Route: 048
     Dates: start: 19960101, end: 19990101
  2. ESTRATAB [Suspect]
  3. PREMARIN [Suspect]
  4. PROVERA [Suspect]

REACTIONS (1)
  - BREAST CANCER [None]
